FAERS Safety Report 22976242 (Version 25)
Quarter: 2025Q4

REPORT INFORMATION
  Report Type: Spontaneous
  Country: CA (occurrence: CA)
  Receive Date: 20230925
  Receipt Date: 20251006
  Transmission Date: 20260117
  Serious: Yes (Disabling, Other)
  Sender: CELLTRION
  Company Number: CA-CELLTRION INC.-2023CA014450

PATIENT

DRUGS (34)
  1. INFLECTRA [Suspect]
     Active Substance: INFLIXIMAB-DYYB
     Indication: Crohn^s disease
     Dosage: 5 MG/KG, 0, 2, 6 WEEKS, THEN EVERY 8 WEEKS
     Route: 042
     Dates: start: 20230313
  2. INFLECTRA [Suspect]
     Active Substance: INFLIXIMAB-DYYB
     Dosage: 5 MG/KG, 0, 2, 6 WEEKS, THEN EVERY 8 WEEKS
     Route: 042
     Dates: start: 20230601
  3. INFLECTRA [Suspect]
     Active Substance: INFLIXIMAB-DYYB
     Dosage: 334 MG (5 MG/KG), AFTER 6 WEEKS (0, 2, 6 WEEKS, THEN EVERY 8 WEEKS)
     Route: 042
     Dates: start: 20230713
  4. INFLECTRA [Suspect]
     Active Substance: INFLIXIMAB-DYYB
     Dosage: 350 MG (5 MG/KG), AFTER 4 WEEKS (PRESCRIBED EVERY 4 WEEK)
     Route: 042
     Dates: start: 20230817
  5. INFLECTRA [Suspect]
     Active Substance: INFLIXIMAB-DYYB
     Dosage: 350 MG (5 MG/KG), AFTER 4 WEEKS
     Route: 042
     Dates: start: 20230915
  6. INFLECTRA [Suspect]
     Active Substance: INFLIXIMAB-DYYB
     Dosage: 350 MG (5 MG/KG), AFTER 4 WEEKS
     Route: 042
     Dates: start: 20231013
  7. INFLECTRA [Suspect]
     Active Substance: INFLIXIMAB-DYYB
     Dosage: 350 MG (5 MG/KG), AFTER 4 WEEKS (PRESCRIBED EVERY 4 WEEK)
     Route: 042
     Dates: start: 20231110
  8. INFLECTRA [Suspect]
     Active Substance: INFLIXIMAB-DYYB
     Dosage: 690.2 MG (10 MG/KG), EVERY 4 WEEKS
     Route: 042
     Dates: start: 20231212
  9. INFLECTRA [Suspect]
     Active Substance: INFLIXIMAB-DYYB
     Dosage: 700 MG (10 MG/KG), AFTER 3 WEEKS AND 3 DAYS (PRESCRIBED Q 4 WEEKS)
     Route: 042
     Dates: start: 20240105
  10. INFLECTRA [Suspect]
     Active Substance: INFLIXIMAB-DYYB
     Dosage: 10 MG/KG, EVERY 4 WEEKS
     Route: 042
     Dates: start: 20240201
  11. INFLECTRA [Suspect]
     Active Substance: INFLIXIMAB-DYYB
     Dosage: 700 MG (10 MG/KG), EVERY 4 WEEKS
     Route: 042
     Dates: start: 20240228
  12. INFLECTRA [Suspect]
     Active Substance: INFLIXIMAB-DYYB
     Dosage: 700 MG (10 MG/KG), EVERY 4 WEEKS
     Route: 042
     Dates: start: 20240327
  13. INFLECTRA [Suspect]
     Active Substance: INFLIXIMAB-DYYB
     Dosage: 700 MG, EVERY 4 WEEKS
     Route: 042
     Dates: start: 20240424
  14. INFLECTRA [Suspect]
     Active Substance: INFLIXIMAB-DYYB
     Dosage: 700 MG, EVERY 4 WEEKS
     Route: 042
     Dates: start: 20240522
  15. INFLECTRA [Suspect]
     Active Substance: INFLIXIMAB-DYYB
     Dosage: 700 MG, EVERY 4 WEEKS
     Route: 042
     Dates: start: 20240619
  16. INFLECTRA [Suspect]
     Active Substance: INFLIXIMAB-DYYB
     Dosage: 737 MG (10 MG/KG), EVERY 4 WEEKS
     Route: 042
     Dates: start: 20240717
  17. INFLECTRA [Suspect]
     Active Substance: INFLIXIMAB-DYYB
     Dosage: 736 MG (10MG/KG), EVERY 4 WEEKS
     Route: 042
     Dates: start: 20240814
  18. INFLECTRA [Suspect]
     Active Substance: INFLIXIMAB-DYYB
     Dosage: 738 MG (10 MG/KG), EVERY 4 WEEKS
     Route: 042
     Dates: start: 20240911
  19. INFLECTRA [Suspect]
     Active Substance: INFLIXIMAB-DYYB
     Dosage: 756 MG (10 MG/KG), EVERY 4 WEEKS
     Route: 042
     Dates: start: 20241009
  20. INFLECTRA [Suspect]
     Active Substance: INFLIXIMAB-DYYB
     Dosage: 746 MG (10 MG/KG), EVERY 4 WEEKS
     Route: 042
     Dates: start: 20241106
  21. INFLECTRA [Suspect]
     Active Substance: INFLIXIMAB-DYYB
     Dosage: 732 MG (10 MG/KG), EVERY 4 WEEKS
     Route: 042
     Dates: start: 20241204
  22. INFLECTRA [Suspect]
     Active Substance: INFLIXIMAB-DYYB
     Dosage: 10 MG/KG, EVERY 4 WEEKS
     Route: 042
     Dates: start: 20241231
  23. INFLECTRA [Suspect]
     Active Substance: INFLIXIMAB-DYYB
     Dosage: 10 MG/KG, EVERY 4 WEEKS
     Route: 042
     Dates: start: 20241231
  24. INFLECTRA [Suspect]
     Active Substance: INFLIXIMAB-DYYB
     Dosage: 682 MG (10 MG/KG) AFTER 4 WEEKS (PRESCRIBED EVERY 4 WEEKS)
     Route: 042
     Dates: start: 20250129
  25. INFLECTRA [Suspect]
     Active Substance: INFLIXIMAB-DYYB
     Dosage: 678 MG (10 MG/KG) AFTER 4 WEEKS (PRESCRIBED EVERY 4 WEEKS)
     Route: 042
     Dates: start: 20250226
  26. INFLECTRA [Suspect]
     Active Substance: INFLIXIMAB-DYYB
     Dosage: 633 MG, AFTER 4 WEEKS (10 MG/KG, EVERY 4 WEEKS)
     Route: 042
     Dates: start: 20250326
  27. INFLECTRA [Suspect]
     Active Substance: INFLIXIMAB-DYYB
     Dosage: 617 MG, 4 WEEKS (10 MG/KG, EVERY 4 WEEKS)
     Route: 042
     Dates: start: 20250423
  28. INFLECTRA [Suspect]
     Active Substance: INFLIXIMAB-DYYB
     Dosage: 628 MG,4 WEEKS,(10MG/KG,EVERY 4 WEEK)
     Route: 042
     Dates: start: 20250521
  29. CRESTOR [Concomitant]
     Active Substance: ROSUVASTATIN CALCIUM
     Indication: Hypercholesterolaemia
     Dosage: 15 MG, DAILY
  30. IMODIUM [Concomitant]
     Active Substance: LOPERAMIDE HYDROCHLORIDE
     Indication: Diarrhoea
     Dosage: 2 MG
  31. JANUMET [Concomitant]
     Active Substance: METFORMIN HYDROCHLORIDE\SITAGLIPTIN PHOSPHATE
     Indication: Diabetes mellitus
     Dosage: 50/1000, 1X/DAY
  32. JANUMET [Concomitant]
     Active Substance: METFORMIN HYDROCHLORIDE\SITAGLIPTIN PHOSPHATE
     Dosage: 50/1000, 1X/DAY
  33. PREDNISONE [Concomitant]
     Active Substance: PREDNISONE
     Indication: Pain
     Dosage: 20 MG
  34. INSULIN ASPART [Concomitant]
     Active Substance: INSULIN ASPART
     Indication: Diabetes mellitus
     Dosage: UNK (9 UNITS AM, 12 AFTERNOON, 9 UNITS AT NIGHT)

REACTIONS (11)
  - Large intestinal stenosis [Not Recovered/Not Resolved]
  - Condition aggravated [Recovering/Resolving]
  - Drug level decreased [Unknown]
  - Iron deficiency [Unknown]
  - Anal fissure [Recovered/Resolved]
  - Fistula [Recovered/Resolved]
  - Arthralgia [Recovered/Resolved]
  - Abscess [Recovered/Resolved]
  - Eye inflammation [Not Recovered/Not Resolved]
  - Maternal exposure during pregnancy [Unknown]
  - Off label use [Unknown]

NARRATIVE: CASE EVENT DATE: 20230101
